FAERS Safety Report 6187688-2 (Version None)
Quarter: 2009Q2

REPORT INFORMATION
  Report Type: 
  Country: None (occurrence: None)
  Receive Date: 20090511
  Receipt Date: 20090430
  Transmission Date: 20091009
  Serious: Yes (Life-Threatening)
  Sender: FDA-Public Use
  Company Number: 1000005628

PATIENT
  Age: 69 Year
  Sex: Female
  Weight: 60 kg

DRUGS (3)
  1. ESCITALOPRAM [Suspect]
     Dosage: ORAL
     Route: 048
     Dates: start: 20080101, end: 20080330
  2. PREVISCAN [Suspect]
     Dosage: 0.75 DOSAGE FORMS  (0.75 DOSAGE FORMS, 1 IN 1 D)
  3. RISPERDAL [Concomitant]

REACTIONS (4)
  - EPISTAXIS [None]
  - HAEMATURIA [None]
  - HAEMORRHAGIC DISORDER [None]
  - INTERNATIONAL NORMALISED RATIO INCREASED [None]
